FAERS Safety Report 9735825 (Version 1)
Quarter: 2013Q4

REPORT INFORMATION
  Report Type: Spontaneous
  Country: US (occurrence: US)
  Receive Date: 20131206
  Receipt Date: 20131206
  Transmission Date: 20140711
  Serious: No
  Sender: FDA-Public Use
  Company Number: US-GILEAD-2009-0023815

PATIENT
  Sex: Female
  Weight: 158.76 kg

DRUGS (11)
  1. LETAIRIS [Suspect]
     Indication: PULMONARY ARTERIAL HYPERTENSION
     Route: 048
     Dates: start: 20090707
  2. GABAPENTIN [Concomitant]
  3. SINGULAIR [Concomitant]
  4. VICODIN ES [Concomitant]
  5. TEMAZEPAM [Concomitant]
  6. ACIPHEX [Concomitant]
  7. ASTELIN [Concomitant]
  8. METFORMIN HCL [Concomitant]
  9. TOPROL XL [Concomitant]
  10. ADVIL [Concomitant]
  11. ASPIRIN [Concomitant]

REACTIONS (1)
  - Unevaluable event [Unknown]
